FAERS Safety Report 9623286 (Version 3)
Quarter: 2014Q4

REPORT INFORMATION
  Report Type: Spontaneous
  Country: US (occurrence: None)
  Receive Date: 20131010
  Receipt Date: 20141117
  Transmission Date: 20150529
  Serious: Yes (Death, Life-Threatening, Hospitalization, Other)
  Sender: FDA-Public Use
  Company Number: INT_00318_2013

PATIENT
  Age: 39 Year
  Sex: Female
  Weight: 58.4 kg

DRUGS (9)
  1. CISPLATIN. [Suspect]
     Active Substance: CISPLATIN
     Route: 042
     Dates: start: 20130913, end: 20130913
  2. ACYCLOVIR. [Concomitant]
     Active Substance: ACYCLOVIR
  3. ACETAMINOPHEN. [Concomitant]
     Active Substance: ACETAMINOPHEN
  4. KW-0761 [Suspect]
     Active Substance: MOGAMULIZUMAB
     Indication: ADULT T-CELL LYMPHOMA/LEUKAEMIA
     Route: 042
     Dates: start: 20131002
  5. CIPRO [Concomitant]
     Active Substance: CIPROFLOXACIN HYDROCHLORIDE
  6. DEXAMETHASONE. [Suspect]
     Active Substance: DEXAMETHASONE
     Indication: ADULT T-CELL LYMPHOMA/LEUKAEMIA
     Dosage: DAILY
     Route: 042
     Dates: start: 20130913, end: 20130916
  7. CYTARABINE. [Suspect]
     Active Substance: CYTARABINE
     Indication: ADULT T-CELL LYMPHOMA/LEUKAEMIA
     Route: 042
     Dates: start: 20130914, end: 20130915
  8. ZOFRAN [Concomitant]
     Active Substance: ONDANSETRON HYDROCHLORIDE
  9. CISPLATIN. [Suspect]
     Active Substance: CISPLATIN
     Indication: ADULT T-CELL LYMPHOMA/LEUKAEMIA
     Route: 042
     Dates: start: 20130913, end: 20130913

REACTIONS (5)
  - Thrombocytopenia [None]
  - Malignant neoplasm progression [None]
  - Adult T-cell lymphoma/leukaemia [None]
  - Respiratory failure [None]
  - Hypercalcaemia [None]

NARRATIVE: CASE EVENT DATE: 20130920
